FAERS Safety Report 5259232-5 (Version None)
Quarter: 2007Q1

REPORT INFORMATION
  Report Type: 
  Country: None (occurrence: None)
  Receive Date: 20070308
  Receipt Date: 20070226
  Transmission Date: 20070707
  Serious: Yes (Death, Other)
  Sender: FDA-Public Use
  Company Number: CHWYE252119JAN07

PATIENT
  Sex: Female

DRUGS (1)
  1. ENBREL [Suspect]
     Dates: start: 20050901, end: 20060201

REACTIONS (4)
  - ABORTION INDUCED [None]
  - BRAIN MALFORMATION [None]
  - DRUG EXPOSURE BEFORE PREGNANCY [None]
  - FOETAL MALFORMATION [None]
